FAERS Safety Report 8295031-8 (Version None)
Quarter: 2012Q2

REPORT INFORMATION
  Report Type: 
  Country: None (occurrence: None)
  Receive Date: 20120416
  Receipt Date: 20120331
  Transmission Date: 20120825
  Serious: Yes (Other)
  Sender: FDA-Public Use
  Company Number: 2012AP000963

PATIENT
  Age: 34 Year
  Sex: Female

DRUGS (2)
  1. ALCOHOL [Suspect]
     Indication: PRODUCT USED FOR UNKNOWN INDICATION
     Dosage: 10 MG, HS
  2. ZOLPIDEM TARTRATE [Suspect]
     Indication: PRODUCT USED FOR UNKNOWN INDICATION
     Dosage: 10 MG, HS

REACTIONS (7)
  - ROAD TRAFFIC ACCIDENT [None]
  - IMPRISONMENT [None]
  - INCOHERENT [None]
  - AUTOMATISM [None]
  - ALCOHOL USE [None]
  - SOMNAMBULISM [None]
  - AMNESIA [None]
